FAERS Safety Report 5795506-7 (Version None)
Quarter: 2008Q2

REPORT INFORMATION
  Report Type: 
  Country: None (occurrence: None)
  Receive Date: 20080630
  Receipt Date: 20080617
  Transmission Date: 20081010
  Serious: Yes (Other)
  Sender: FDA-Public Use
  Company Number: PHRM2005FR00989

PATIENT
  Age: 22 Year
  Sex: Male

DRUGS (6)
  1. NEORAL [Suspect]
     Indication: LUNG TRANSPLANT
     Dosage: }10 MG/KG/DAY
     Route: 048
     Dates: start: 20050130
  2. CYCLOSPORINE [Suspect]
     Indication: LUNG TRANSPLANT
     Route: 042
  3. CELLCEPT [Concomitant]
     Indication: LUNG TRANSPLANT
     Dosage: 3 G/DAY
     Route: 048
  4. METHYLPREDNISOLONE [Concomitant]
     Dosage: 60 MG DAILY
     Route: 048
  5. CIPROFLOXACIN [Concomitant]
  6. IMIPENEM [Concomitant]

REACTIONS (10)
  - DRUG LEVEL INCREASED [None]
  - HYPOXIA [None]
  - LUNG INFECTION [None]
  - MALABSORPTION [None]
  - PANCREATIC INSUFFICIENCY [None]
  - PRURITUS [None]
  - RASH FOLLICULAR [None]
  - RASH PAPULAR [None]
  - SKIN DYSTROPHY [None]
  - SKIN HYPERPIGMENTATION [None]
